FAERS Safety Report 23387535 (Version 1)
Quarter: 2024Q1

REPORT INFORMATION
  Report Type: Report from Study
  Country: IT (occurrence: US)
  Receive Date: 20240110
  Receipt Date: 20240110
  Transmission Date: 20240410
  Serious: Yes (Death, Other)
  Sender: FDA-Public Use
  Company Number: IT-TEVA-VS-3135999

PATIENT
  Sex: Male

DRUGS (4)
  1. IRINOTECAN HYDROCHLORIDE [Suspect]
     Active Substance: IRINOTECAN HYDROCHLORIDE
     Indication: Pancreatic carcinoma
     Dosage: 43 MG/M2, CYCLIC: OVER 90 MINUTES ON DAY 1 AND 15 OF EACH CYCLE
     Route: 042
  2. OXALIPLATIN [Suspect]
     Active Substance: OXALIPLATIN
     Indication: Pancreatic carcinoma
     Dosage: 60 MG/M2, CYCLIC: 120 MINUTES ON DAYS 1 AND 15 OF EACH CYCLE
     Route: 042
  3. FLUOROURACIL [Suspect]
     Active Substance: FLUOROURACIL
     Indication: Pancreatic carcinoma
     Dosage: 2400 MG/M2, CYCLIC: OVER 46 HOURS ON DAYS 1 AND 15 OF EACH CYCLE
     Route: 042
  4. LEVOLEUCOVORIN CALCIUM [Suspect]
     Active Substance: LEVOLEUCOVORIN CALCIUM
     Indication: Pancreatic carcinoma
     Dosage: 200 MG/M2, CYCLIC: OVER 30 MINUTES ON DAY 1 AND 15 OF EACH CYCLE
     Route: 042

REACTIONS (2)
  - Sepsis [Fatal]
  - Febrile neutropenia [Fatal]
